FAERS Safety Report 21227374 (Version 1)
Quarter: 2022Q3

REPORT INFORMATION
  Report Type: Spontaneous
  Country: US (occurrence: US)
  Receive Date: 20220818
  Receipt Date: 20220818
  Transmission Date: 20221027
  Serious: Yes (Other)
  Sender: FDA-Public Use
  Company Number: US-AMGEN-USASP2022138944

PATIENT
  Sex: Female

DRUGS (3)
  1. BEVACIZUMAB [Suspect]
     Active Substance: BEVACIZUMAB
     Indication: Neuroendocrine carcinoma of the cervix
     Dosage: UNK 6 CYCLES
     Route: 065
  2. EVEROLIMUS [Concomitant]
     Active Substance: EVEROLIMUS
     Indication: Neuroendocrine carcinoma of the cervix
     Dosage: UNK UNK, QD
     Route: 065
  3. IPILIMUMAB [Concomitant]
     Active Substance: IPILIMUMAB
     Indication: Neuroendocrine carcinoma of the cervix
     Dosage: UNK
     Route: 065

REACTIONS (1)
  - Neuroendocrine carcinoma of the cervix [Unknown]
